FAERS Safety Report 18253212 (Version 2)
Quarter: 2020Q3

REPORT INFORMATION
  Report Type: Report from Study
  Country: US (occurrence: US)
  Receive Date: 20200910
  Receipt Date: 20200920
  Transmission Date: 20201103
  Serious: Yes (Death, Other)
  Sender: FDA-Public Use
  Company Number: US-BRISTOL-MYERS SQUIBB COMPANY-BMS-2020-073838

PATIENT
  Age: 55 Year
  Sex: Male
  Weight: 156.5 kg

DRUGS (2)
  1. IPILIMUMAB [Suspect]
     Active Substance: IPILIMUMAB
     Indication: LEIOMYOSARCOMA
     Dosage: 165 MILLIGRAM, Q3WK
     Route: 042
     Dates: start: 20200629, end: 20200811
  2. NIVOLUMAB [Suspect]
     Active Substance: NIVOLUMAB
     Indication: LEIOMYOSARCOMA
     Dosage: 495 MILLIGRAM, Q3WK
     Route: 042
     Dates: start: 20200629, end: 20200811

REACTIONS (1)
  - Sudden death [Fatal]

NARRATIVE: CASE EVENT DATE: 20200906
